FAERS Safety Report 19502266 (Version 1)
Quarter: 2021Q3

REPORT INFORMATION
  Report Type: Spontaneous
  Country: US (occurrence: US)
  Receive Date: 20210707
  Receipt Date: 20210707
  Transmission Date: 20211014
  Serious: Yes (Death, Hospitalization)
  Sender: FDA-Public Use
  Company Number: None

PATIENT
  Age: 22 Year
  Sex: Female
  Weight: 99.2 kg

DRUGS (6)
  1. VINCRISTINE SULFATE. [Suspect]
     Active Substance: VINCRISTINE SULFATE
     Dates: end: 20210518
  2. METHOTREXATE. [Suspect]
     Active Substance: METHOTREXATE
     Dates: end: 20210511
  3. PREDNISOLONE. [Suspect]
     Active Substance: PREDNISOLONE
     Dates: end: 20210519
  4. CYTARABINE. [Suspect]
     Active Substance: CYTARABINE
     Dates: end: 20210504
  5. DAUNORUBICIN [Suspect]
     Active Substance: DAUNORUBICIN
     Dates: end: 20210518
  6. ONCASPAR [Suspect]
     Active Substance: PEGASPARGASE
     Dates: end: 20210507

REACTIONS (9)
  - Escherichia sepsis [None]
  - Gastrointestinal necrosis [None]
  - Blood culture positive [None]
  - Febrile neutropenia [None]
  - Mucormycosis [None]
  - Septic shock [None]
  - Cholangitis acute [None]
  - Dialysis [None]
  - Hepatic fibrosis [None]

NARRATIVE: CASE EVENT DATE: 20210523
